FAERS Safety Report 13678698 (Version 1)
Quarter: 2017Q2

REPORT INFORMATION
  Report Type: Spontaneous
  Country: US (occurrence: US)
  Receive Date: 20170622
  Receipt Date: 20170622
  Transmission Date: 20170830
  Serious: No
  Sender: FDA-Public Use
  Company Number: US-SA-2017SA017688

PATIENT
  Age: 12 Year
  Sex: Male
  Weight: 40 kg

DRUGS (10)
  1. CEREZYME [Suspect]
     Active Substance: IMIGLUCERASE
     Indication: GAUCHER^S DISEASE
     Route: 041
     Dates: start: 20131219
  2. HEPARIN [Concomitant]
     Active Substance: HEPARIN SODIUM
     Dosage: DOSE: 100 UN/ML
     Route: 042
     Dates: start: 20170123
  3. LANTUS [Concomitant]
     Active Substance: INSULIN GLARGINE
     Dosage: EVERY EVENING
     Route: 058
     Dates: start: 20170111
  4. EPIPEN [Concomitant]
     Active Substance: EPINEPHRINE
     Route: 042
     Dates: start: 20170123
  5. DIPHENHYDRAMINE. [Concomitant]
     Active Substance: DIPHENHYDRAMINE
     Dosage: DOSE:2.5 MILLIGRAM(S)/MILLILITRE
     Route: 048
     Dates: start: 20170123
  6. LIDOCAINE/PRILOCAINE [Concomitant]
     Indication: PREMEDICATION
     Route: 061
     Dates: start: 20170123
  7. NORMAL SALINE [Concomitant]
     Active Substance: SODIUM CHLORIDE
     Route: 042
     Dates: start: 20170123
  8. HUMALOG [Concomitant]
     Active Substance: INSULIN LISPRO
     Dosage: AS DIRECTED
     Route: 058
     Dates: start: 20161213
  9. L-M-X [Concomitant]
     Indication: PREMEDICATION
     Route: 061
     Dates: start: 20170123
  10. LEXAPRO [Concomitant]
     Active Substance: ESCITALOPRAM OXALATE
     Route: 048
     Dates: start: 20161212

REACTIONS (1)
  - Headache [Recovered/Resolved]
